FAERS Safety Report 24804873 (Version 2)
Quarter: 2025Q1

REPORT INFORMATION
  Report Type: Spontaneous
  Country: US (occurrence: US)
  Receive Date: 20250103
  Receipt Date: 20250103
  Transmission Date: 20250408
  Serious: Yes (Hospitalization)
  Sender: ROCHE
  Company Number: US-ROCHE-10000168361

PATIENT
  Sex: Male

DRUGS (5)
  1. OBINUTUZUMAB [Suspect]
     Active Substance: OBINUTUZUMAB
     Indication: Product used for unknown indication
     Route: 065
     Dates: start: 20230619
  2. VENETOCLAX [Suspect]
     Active Substance: VENETOCLAX
     Indication: Chronic lymphocytic leukaemia
     Route: 048
  3. OCTAGAM IMMUNE GLOBULIN (HUMAN) [Suspect]
     Active Substance: HUMAN IMMUNOGLOBULIN G
     Indication: Chronic lymphocytic leukaemia
     Route: 065
  4. Allopurinol (Allopurinol sodium) [Concomitant]
     Indication: Product used for unknown indication
  5. Evusheld (Cilgavimab;Tixagevimab) [Concomitant]
     Indication: Product used for unknown indication

REACTIONS (16)
  - COVID-19 [Unknown]
  - Epididymitis [Unknown]
  - Lymphocyte count increased [Unknown]
  - Night sweats [Unknown]
  - Trisomy 12 [Unknown]
  - Groin pain [Unknown]
  - Hepatosplenomegaly [Unknown]
  - Lymphadenopathy [Unknown]
  - Infusion related reaction [Unknown]
  - Pneumonia [Unknown]
  - Rhinovirus infection [Unknown]
  - Rash [Recovered/Resolved]
  - Nausea [Unknown]
  - Diarrhoea [Unknown]
  - Pruritus [Recovered/Resolved]
  - Gout [Unknown]
